FAERS Safety Report 8168901-9 (Version None)
Quarter: 2012Q1

REPORT INFORMATION
  Report Type: 
  Country: None (occurrence: None)
  Receive Date: 20120227
  Receipt Date: 20120216
  Transmission Date: 20120608
  Serious: Yes (Hospitalization)
  Sender: FDA-Public Use
  Company Number: US-CELGENEUS-163-21880-11112482

PATIENT
  Sex: Male
  Weight: 68.009 kg

DRUGS (5)
  1. REVLIMID [Suspect]
     Indication: MULTIPLE MYELOMA
     Dosage: 10 MILLIGRAM
     Route: 048
     Dates: start: 20111101, end: 20111201
  2. DECADRON [Concomitant]
     Route: 065
     Dates: start: 20110101, end: 20110101
  3. HYDRATION [Concomitant]
     Route: 065
     Dates: start: 20110101
  4. DECADRON [Concomitant]
     Indication: MULTIPLE MYELOMA
     Dosage: 40 MILLIGRAM
     Route: 065
     Dates: start: 20111122
  5. ZOFRAN [Concomitant]
     Indication: NAUSEA
     Dates: start: 20110101

REACTIONS (3)
  - FULL BLOOD COUNT ABNORMAL [None]
  - ASTHENIA [None]
  - TREMOR [None]
